FAERS Safety Report 10414999 (Version 2)
Quarter: 2014Q4

REPORT INFORMATION
  Report Type: Spontaneous
  Country: US (occurrence: None)
  Receive Date: 20140604
  Receipt Date: 20141010
  Transmission Date: 20150528
  Serious: No
  Sender: FDA-Public Use
  Company Number: 163-POMAL-14032838

PATIENT
  Age: 71 Year
  Sex: Female

DRUGS (11)
  1. DEXAMETHASONE. [Concomitant]
     Active Substance: DEXAMETHASONE
  2. MICONAZOLE NITRATE (MICONAZOLE NITRATE) [Concomitant]
  3. LIDOCAINE-MENTHOL (OTHER LOCAL ANESTHETICS) [Concomitant]
  4. ASPIRIN (ACETYLSALICYLIC ACID) [Concomitant]
     Active Substance: ASPIRIN
  5. MIRALAX (MACROGOL) [Concomitant]
  6. ADVIL [Concomitant]
     Active Substance: IBUPROFEN
  7. MOBIC [Concomitant]
     Active Substance: MELOXICAM
  8. LOSARTAN/ HYDROCHLOROTHIAZIDE (HYZAAR) [Concomitant]
  9. SIMVASTATIN. [Concomitant]
     Active Substance: SIMVASTATIN
  10. VALTREX [Concomitant]
     Active Substance: VALACYCLOVIR HYDROCHLORIDE
  11. POMALYST [Suspect]
     Active Substance: POMALIDOMIDE
     Indication: PLASMA CELL MYELOMA
     Dosage: 21 IN 21 D
     Route: 048
     Dates: start: 20140217, end: 20140224

REACTIONS (3)
  - Erythema [None]
  - Ocular hyperaemia [None]
  - Pruritus [None]

NARRATIVE: CASE EVENT DATE: 20140218
